FAERS Safety Report 8556366-4 (Version None)
Quarter: 2012Q3

REPORT INFORMATION
  Report Type: 
  Country: None (occurrence: None)
  Receive Date: 20120801
  Receipt Date: 20120717
  Transmission Date: 20120928
  Serious: No
  Sender: FDA-Public Use
  Company Number: US-JNJFOC-20120709898

PATIENT
  Age: 53 Year
  Sex: Female

DRUGS (6)
  1. PRAZOSIN [Concomitant]
  2. VIIBRYD [Concomitant]
     Indication: DEPRESSION
     Route: 048
  3. DEPAKOTE ER [Concomitant]
  4. ABILIFY [Concomitant]
  5. HYDROCODONE [Concomitant]
  6. INVEGA SUSTENNA [Suspect]
     Indication: SCHIZOPHRENIA
     Route: 030
     Dates: start: 20120101

REACTIONS (1)
  - BLOOD PRESSURE INCREASED [None]
